FAERS Safety Report 5947740-0 (Version None)
Quarter: 2008Q4

REPORT INFORMATION
  Report Type: 
  Country: None (occurrence: None)
  Receive Date: 20081110
  Receipt Date: 20081110
  Transmission Date: 20090506
  Serious: Yes (Other)
  Sender: FDA-Public Use
  Company Number: None

PATIENT
  Age: 43 Year
  Sex: Female
  Weight: 79.8331 kg

DRUGS (1)
  1. ZYRTEC-D 12 HOUR [Suspect]
     Indication: HYPERSENSITIVITY
     Dosage: 1 TABLET 1 DAILY PO
     Route: 048
     Dates: start: 20081105, end: 20081107

REACTIONS (7)
  - DRUG EXPOSURE DURING PREGNANCY [None]
  - ECONOMIC PROBLEM [None]
  - MALAISE [None]
  - POOR QUALITY DRUG ADMINISTERED [None]
  - PRESYNCOPE [None]
  - PRODUCT QUALITY ISSUE [None]
  - VOMITING [None]
